FAERS Safety Report 8227154-3 (Version None)
Quarter: 2012Q1

REPORT INFORMATION
  Report Type: 
  Country: None (occurrence: None)
  Receive Date: 20120322
  Receipt Date: 20120313
  Transmission Date: 20120608
  Serious: No
  Sender: FDA-Public Use
  Company Number: US-JNJFOC-20120307527

PATIENT
  Age: 38 Year
  Sex: Male

DRUGS (2)
  1. INVEGA SUSTENNA [Suspect]
     Indication: PRODUCT USED FOR UNKNOWN INDICATION
     Route: 030
     Dates: start: 20111201, end: 20120201
  2. INVEGA SUSTENNA [Suspect]
     Route: 030
     Dates: start: 20120201

REACTIONS (1)
  - SEDATION [None]
